FAERS Safety Report 14782518 (Version 1)
Quarter: 2018Q2

REPORT INFORMATION
  Report Type: Spontaneous
  Country: DE (occurrence: DE)
  Receive Date: 20180420
  Receipt Date: 20180420
  Transmission Date: 20180711
  Serious: Yes (Life-Threatening, Other)
  Sender: FDA-Public Use
  Company Number: DE-AUROBINDO-AUR-APL-2018-020717

PATIENT
  Sex: Male

DRUGS (7)
  1. FENTANYL CITRATE. [Suspect]
     Active Substance: FENTANYL CITRATE
     Indication: ANAESTHESIA
     Dosage: DOSAGE FORM: SOLUTION
     Route: 065
  2. HYPNOMIDATE [Suspect]
     Active Substance: ETOMIDATE SULFATE
     Indication: ANAESTHESIA
     Dosage: DOSAGE FORM: UNSPECIFIED
     Route: 065
  3. ATROPINE. [Suspect]
     Active Substance: ATROPINE
     Indication: PRODUCT USED FOR UNKNOWN INDICATION
     Dosage: DOSAGE FORM: UNSPECIFIED
     Route: 065
  4. PANCURONIUM BROMIDE. [Suspect]
     Active Substance: PANCURONIUM BROMIDE
     Indication: ANAESTHESIA
     Dosage: DOSAGE FORM: UNSPECIFIED
     Route: 065
  5. ISOFLURANE. [Suspect]
     Active Substance: ISOFLURANE
     Indication: ANAESTHESIA
     Dosage: DOSAGE FORM: UNSPECIFIED
     Route: 065
  6. BUPIVACAINE. [Suspect]
     Active Substance: BUPIVACAINE
     Indication: ANAESTHESIA
     Dosage: DOSAGE FORM: UNSPECIFIED
     Route: 065
  7. SUCCINYL CHOLINE [Suspect]
     Active Substance: SUCCINYLCHOLINE
     Indication: PRODUCT USED FOR UNKNOWN INDICATION
     Dosage: DOSAGE FORM: UNSPECIFIED
     Route: 065

REACTIONS (9)
  - Septic shock [Unknown]
  - Platelet count decreased [Recovering/Resolving]
  - Muscular weakness [Recovering/Resolving]
  - Multiple organ dysfunction syndrome [Recovering/Resolving]
  - Coma [Recovering/Resolving]
  - Oxygen saturation decreased [Recovering/Resolving]
  - Lymphocyte count decreased [Recovering/Resolving]
  - Renal failure [Recovering/Resolving]
  - Rhabdomyolysis [Unknown]
